FAERS Safety Report 17487605 (Version 1)
Quarter: 2020Q1

REPORT INFORMATION
  Report Type: Spontaneous
  Country: US (occurrence: US)
  Receive Date: 20200220
  Receipt Date: 20200220
  Transmission Date: 20200409
  Serious: Yes (Hospitalization)
  Sender: FDA-Public Use
  Company Number: None

PATIENT
  Age: 61 Year
  Sex: Male

DRUGS (1)
  1. TEMOZOLOMIDE 180MG CAP [Suspect]
     Active Substance: TEMOZOLOMIDE
     Indication: BRAIN NEOPLASM MALIGNANT
     Dosage: 180MG CAP 2 CAP DAILY ORAL
     Route: 048
     Dates: start: 20191231

REACTIONS (2)
  - Blood count abnormal [None]
  - Infection [None]

NARRATIVE: CASE EVENT DATE: 20200119
